FAERS Safety Report 18969729 (Version 1)
Quarter: 2021Q1

REPORT INFORMATION
  Report Type: Spontaneous
  Country: GB (occurrence: GB)
  Receive Date: 20210304
  Receipt Date: 20210304
  Transmission Date: 20210420
  Serious: Yes (Death, Other)
  Sender: FDA-Public Use
  Company Number: GB-GLAXOSMITHKLINE-GBCH2021GSK010388

PATIENT
  Age: 16 Year
  Sex: Female

DRUGS (1)
  1. DICLOFENAC DIETHYLAMINE [Suspect]
     Active Substance: DICLOFENAC DIETHYLAMINE
     Indication: PRODUCT USED FOR UNKNOWN INDICATION
     Dosage: UNK
     Route: 065

REACTIONS (8)
  - Constipation [Unknown]
  - Abdominal tenderness [Unknown]
  - Gastric ulcer perforation [Fatal]
  - Peritonitis [Fatal]
  - Abdominal distension [Fatal]
  - Condition aggravated [Fatal]
  - Abdominal pain [Fatal]
  - Sinus tachycardia [Unknown]
